FAERS Safety Report 4828699-6 (Version None)
Quarter: 2005Q4

REPORT INFORMATION
  Report Type: 
  Country: None (occurrence: None)
  Receive Date: 20051115
  Receipt Date: 20050923
  Transmission Date: 20060501
  Serious: Yes (Hospitalization, Other)
  Sender: FDA-Public Use
  Company Number: US-MERCK-0509USA03916

PATIENT
  Age: 47 Year
  Sex: Female
  Weight: 51 kg

DRUGS (10)
  1. VIOXX [Suspect]
     Indication: ARTHRITIS
     Route: 048
     Dates: start: 20030623, end: 20040901
  2. KLOR-CON [Concomitant]
     Route: 065
  3. ALTACE [Concomitant]
     Route: 065
  4. QUININE SULFATE [Concomitant]
     Route: 065
  5. TRAZODONE HYDROCHLORIDE [Concomitant]
     Route: 065
  6. TRAZODONE HYDROCHLORIDE [Concomitant]
     Route: 065
  7. PROCHLORPERAZINE [Concomitant]
     Route: 065
  8. [THERAPY UNSPECIFIED] [Concomitant]
     Route: 065
  9. BEXTRA [Concomitant]
     Route: 065
  10. [THERAPY UNSPECIFIED] [Concomitant]
     Route: 065

REACTIONS (4)
  - ADVERSE EVENT [None]
  - BLOOD POTASSIUM DECREASED [None]
  - CEREBROVASCULAR ACCIDENT [None]
  - CHEST PAIN [None]
